FAERS Safety Report 8811124 (Version 1)
Quarter: 2012Q4

REPORT INFORMATION
  Report Type: 
  Country: BR (occurrence: BR)
  Receive Date: 20120927
  Receipt Date: 20120927
  Transmission Date: 20130627
  Serious: Yes (Other)
  Sender: FDA-Public Use
  Company Number: PHHY2012BR083784

PATIENT
  Sex: Female

DRUGS (2)
  1. ACLASTA [Suspect]
     Indication: OSTEOPOROSIS
     Dosage: 5mg/100ml , UNK
     Route: 042
  2. CALCIUM [Concomitant]

REACTIONS (4)
  - Multiple fractures [Unknown]
  - Malaise [Unknown]
  - Nausea [Unknown]
  - Syncope [Unknown]
